FAERS Safety Report 7108490-0 (Version None)
Quarter: 2010Q4

REPORT INFORMATION
  Report Type: 
  Country: None (occurrence: None)
  Receive Date: 20101117
  Receipt Date: 20101110
  Transmission Date: 20110411
  Serious: Yes (Other)
  Sender: FDA-Public Use
  Company Number: US-SANOFI-AVENTIS-2010SA068833

PATIENT
  Age: 69 Year
  Sex: Female

DRUGS (2)
  1. LANTUS [Suspect]
     Dosage: 60 TO 70 UNITS ONCE DAILY
     Route: 058
  2. SOLOSTAR [Suspect]

REACTIONS (6)
  - BLOOD GLUCOSE INCREASED [None]
  - CATARACT [None]
  - DRUG ADMINISTRATION ERROR [None]
  - RETINAL INJURY [None]
  - VISION BLURRED [None]
  - VISUAL ACUITY REDUCED [None]
